FAERS Safety Report 13587774 (Version 3)
Quarter: 2017Q3

REPORT INFORMATION
  Report Type: Report from Study
  Country: None (occurrence: US)
  Receive Date: 20170527
  Receipt Date: 20170914
  Transmission Date: 20171127
  Serious: Yes (Death)
  Sender: FDA-Public Use
  Company Number: US-ABBVIE-17K-163-1989368-00

PATIENT
  Age: 43 Year
  Sex: Female

DRUGS (2)
  1. HUMIRA [Suspect]
     Active Substance: ADALIMUMAB
     Indication: PSORIASIS
     Route: 058
     Dates: start: 20161018
  2. KETOCONAZOLE. [Concomitant]
     Active Substance: KETOCONAZOLE
     Indication: PRODUCT USED FOR UNKNOWN INDICATION

REACTIONS (1)
  - Death [Fatal]

NARRATIVE: CASE EVENT DATE: 20170424
